FAERS Safety Report 7829455-7 (Version None)
Quarter: 2011Q4

REPORT INFORMATION
  Report Type: 
  Country: None (occurrence: None)
  Receive Date: 20111020
  Receipt Date: 20111006
  Transmission Date: 20120403
  Serious: Yes (Hospitalization)
  Sender: FDA-Public Use
  Company Number: NL-ROCHE-1004805

PATIENT
  Sex: Female
  Weight: 48 kg

DRUGS (17)
  1. DOXORUBICIN HCL [Suspect]
     Indication: DIFFUSE LARGE B-CELL LYMPHOMA
     Dosage: DATE LAST DOSE:06/SEP/2011
     Route: 042
     Dates: start: 20110906
  2. VALACICLOVIR [Concomitant]
     Dosage: DATE LAST DOSE PRIOR TO SAE: 15 SEP 2011
     Route: 048
     Dates: start: 20110901
  3. GRANISETRON [Concomitant]
     Indication: NAUSEA
     Dosage: DATE OF LAST DOSE PRIOR TO SAE: 15 SEP 2011
     Route: 048
     Dates: start: 20110912
  4. MABTHERA [Suspect]
     Indication: DIFFUSE LARGE B-CELL LYMPHOMA
     Dosage: DATE LAST DOSE: 06/SEP/2011
     Route: 042
     Dates: start: 20110906
  5. PREDNISONE [Suspect]
     Dosage: DATE LAST DOSE:13/SEP/2011
     Route: 048
     Dates: start: 20110913
  6. VINCRISTINE [Suspect]
     Indication: DIFFUSE LARGE B-CELL LYMPHOMA
     Dosage: DATE LAST DOSE: 06/SEP/2011
     Route: 042
     Dates: start: 20110906
  7. COTRIM [Concomitant]
     Dosage: DATE LAST DOSE PRIOR TO SAE: 15 SEP 2011
     Route: 048
     Dates: start: 20110901
  8. METFORMIN HCL [Concomitant]
     Indication: DIABETES MELLITUS
     Dosage: DATE LAST DOSE PRIOR TO SAE: 15 SEPTEMBER 2011
     Route: 048
     Dates: start: 20110908
  9. PRIMPERAN SUPPOSITORIES [Concomitant]
     Indication: NAUSEA
     Dosage: DATE LAST DOSE PRIOR TO SAE: 15 SEP 2011
  10. FILGRASTIM [Suspect]
     Indication: DIFFUSE LARGE B-CELL LYMPHOMA
     Dosage: DATE LAST DOSE:07/SEP/2011
     Route: 058
     Dates: start: 20110907
  11. PREDNISONE [Suspect]
     Dosage: DATE LAST DOSE:12/SEP/2011
     Route: 048
     Dates: start: 20110912
  12. NEXIUM [Concomitant]
     Indication: GASTRITIS
     Dosage: DATE OF LAST DOSE PRIOR TO SAE: 15 SEP 2011
     Route: 048
     Dates: start: 20090101
  13. PREDNISONE [Suspect]
     Indication: DIFFUSE LARGE B-CELL LYMPHOMA
     Dosage: DATE LAST DOSE: 10 SEP 2011
     Route: 048
     Dates: start: 20110901
  14. ASCAL [Concomitant]
     Indication: TRANSIENT ISCHAEMIC ATTACK
     Dosage: DATE LAST DOSE PRIOR TO SAE: 15 SEP 2011
     Route: 048
     Dates: start: 20000101
  15. PREDNISONE [Suspect]
     Dosage: DATE LAST DOSE:11/SEP/2011
     Route: 048
     Dates: start: 20110911
  16. CYCLOPHOSPHAMIDE [Suspect]
     Indication: DIFFUSE LARGE B-CELL LYMPHOMA
     Dosage: DATE LAST DOSE:06/SEP/2011
     Route: 042
     Dates: start: 20110906
  17. MOVICOLON [Concomitant]
     Indication: CONSTIPATION
     Dosage: DATE LAST DOSE PRIOR TO SAE: 15 SEP 2011
     Route: 048
     Dates: start: 20110901

REACTIONS (2)
  - HYPOPHOSPHATAEMIA [None]
  - MUSCULAR WEAKNESS [None]
